FAERS Safety Report 8910366 (Version 1)
Quarter: 2012Q4

REPORT INFORMATION
  Report Type: 
  Country: IN (occurrence: IN)
  Receive Date: 20121115
  Receipt Date: 20121115
  Transmission Date: 20130627
  Serious: Yes (Other)
  Sender: FDA-Public Use
  Company Number: IN-BAYER-2012-119382

PATIENT
  Age: 22 Year
  Sex: Male

DRUGS (1)
  1. CIPROFLOXACIN [Suspect]
     Indication: FEVER
     Dosage: 500 mg, BID

REACTIONS (4)
  - Pyoderma gangrenosum [Recovered/Resolved]
  - Renal impairment [Recovering/Resolving]
  - Thrombocytopenia [Recovering/Resolving]
  - Liver function test abnormal [None]
